FAERS Safety Report 23904196 (Version 2)
Quarter: 2024Q3

REPORT INFORMATION
  Report Type: Spontaneous
  Country: JP (occurrence: JP)
  Receive Date: 20240527
  Receipt Date: 20240801
  Transmission Date: 20241017
  Serious: Yes (Hospitalization, Other)
  Sender: MERCK
  Company Number: JP-BAYER-2024A074543

PATIENT
  Age: 58 Year
  Sex: Male

DRUGS (8)
  1. VERICIGUAT [Suspect]
     Active Substance: VERICIGUAT
     Indication: Cardiac failure
     Dosage: DAILY DOSE 2.5 MG
     Route: 048
     Dates: start: 20230330, end: 20230510
  2. VERICIGUAT [Suspect]
     Active Substance: VERICIGUAT
     Dosage: DAILY DOSE 5 MG
     Route: 048
     Dates: start: 20230511, end: 202308
  3. CARVEDILOL [Concomitant]
     Active Substance: CARVEDILOL
     Indication: Cardiac failure
     Dosage: 7.5
     Dates: start: 202209
  4. DAPAGLIFLOZIN [Concomitant]
     Active Substance: DAPAGLIFLOZIN
     Indication: Cardiac failure
     Dosage: 10
     Dates: start: 202209, end: 202308
  5. FUROSEMIDE [Concomitant]
     Active Substance: FUROSEMIDE
     Indication: Cardiac failure
     Dosage: 40
     Dates: start: 202209
  6. FUROSEMIDE [Concomitant]
     Active Substance: FUROSEMIDE
     Dosage: 60
     Dates: start: 202212
  7. ADALAT [Concomitant]
     Active Substance: NIFEDIPINE
     Indication: Cardiac failure
     Dosage: 20
     Dates: start: 202209
  8. INSULIN HUMAN [Concomitant]
     Active Substance: INSULIN HUMAN
     Indication: Cardiac failure
     Dosage: UNK
     Dates: start: 202209

REACTIONS (3)
  - Renal impairment [Not Recovered/Not Resolved]
  - Blood creatinine increased [Unknown]
  - Glomerular filtration rate decreased [Unknown]
